FAERS Safety Report 9723785 (Version 1)
Quarter: 2013Q4

REPORT INFORMATION
  Report Type: Spontaneous
  Country: GB (occurrence: GB)
  Receive Date: 20131202
  Receipt Date: 20131202
  Transmission Date: 20140711
  Serious: Yes (Disabling, Other)
  Sender: FDA-Public Use
  Company Number: GB-PFIZER INC-2013337411

PATIENT
  Age: 72 Year
  Sex: Male

DRUGS (3)
  1. DOXAZOSIN MESILATE [Suspect]
     Indication: PROSTATE VOLUME STUDY
     Dosage: 1 MG, UNK
     Route: 048
     Dates: start: 201211, end: 201302
  2. RAMIPRIL [Concomitant]
     Dosage: 5 MG, UNK
  3. FINASTERIDE [Concomitant]
     Dosage: UNK

REACTIONS (2)
  - Local swelling [Recovering/Resolving]
  - Hypersensitivity [Not Recovered/Not Resolved]
